FAERS Safety Report 9125847 (Version 1)
Quarter: 2013Q1

REPORT INFORMATION
  Report Type: Spontaneous
  Country: FI (occurrence: FI)
  Receive Date: 20130121
  Receipt Date: 20130121
  Transmission Date: 20140127
  Serious: Yes (Other)
  Sender: FDA-Public Use
  Company Number: FI-JNJFOC-20130105381

PATIENT
  Age: 70 Year
  Sex: Female

DRUGS (16)
  1. XARELTO [Suspect]
     Indication: EMBOLISM VENOUS
     Route: 048
  2. XARELTO [Suspect]
     Indication: EMBOLISM VENOUS
     Route: 048
  3. XARELTO [Suspect]
     Indication: EMBOLISM VENOUS
     Route: 048
  4. XARELTO [Suspect]
     Indication: EMBOLISM VENOUS
     Route: 048
  5. XARELTO [Suspect]
     Indication: DEEP VEIN THROMBOSIS
     Route: 048
  6. XARELTO [Suspect]
     Indication: DEEP VEIN THROMBOSIS
     Route: 048
  7. XARELTO [Suspect]
     Indication: DEEP VEIN THROMBOSIS
     Route: 048
  8. XARELTO [Suspect]
     Indication: DEEP VEIN THROMBOSIS
     Route: 048
  9. XARELTO [Suspect]
     Indication: KNEE ARTHROPLASTY
     Route: 048
  10. XARELTO [Suspect]
     Indication: KNEE ARTHROPLASTY
     Route: 048
  11. XARELTO [Suspect]
     Indication: KNEE ARTHROPLASTY
     Route: 048
  12. XARELTO [Suspect]
     Indication: KNEE ARTHROPLASTY
     Route: 048
  13. XARELTO [Suspect]
     Indication: THROMBOSIS PROPHYLAXIS
     Route: 048
  14. XARELTO [Suspect]
     Indication: THROMBOSIS PROPHYLAXIS
     Route: 048
  15. XARELTO [Suspect]
     Indication: THROMBOSIS PROPHYLAXIS
     Route: 048
  16. XARELTO [Suspect]
     Indication: THROMBOSIS PROPHYLAXIS
     Route: 048

REACTIONS (2)
  - Deep vein thrombosis [Unknown]
  - Drug ineffective [Unknown]
